FAERS Safety Report 12676012 (Version 1)
Quarter: 2016Q3

REPORT INFORMATION
  Report Type: Spontaneous
  Country: US (occurrence: None)
  Receive Date: 20160822
  Receipt Date: 20160822
  Transmission Date: 20161109
  Serious: Yes (Other)
  Sender: FDA-Public Use
  Company Number: None

PATIENT
  Age: 68 Year
  Sex: Female
  Weight: 60.78 kg

DRUGS (6)
  1. VAGIFEM [Suspect]
     Active Substance: ESTRADIOL
     Indication: VULVOVAGINAL DRYNESS
     Route: 067
     Dates: start: 20160814, end: 20160818
  2. SYNTHROID [Concomitant]
     Active Substance: LEVOTHYROXINE SODIUM
  3. MULTI VITAMIN [Concomitant]
     Active Substance: VITAMINS
  4. OMEGA-3 ACIDS [Concomitant]
     Active Substance: OMEGA-3 FATTY ACIDS
  5. CALCIUM [Concomitant]
     Active Substance: CALCIUM
  6. S-ADENOSYLMETHIONINE SULFATE P-TOLUENESULFONATE [Concomitant]
     Active Substance: ADEMETIONINE SULFATE TOSILATE

REACTIONS (2)
  - Vulvovaginal pain [None]
  - Migraine with aura [None]

NARRATIVE: CASE EVENT DATE: 20160819
